FAERS Safety Report 6989042-X (Version None)
Quarter: 2010Q3

REPORT INFORMATION
  Report Type: 
  Country: None (occurrence: None)
  Receive Date: 20100916
  Receipt Date: 20090921
  Transmission Date: 20110219
  Serious: Yes (Other)
  Sender: FDA-Public Use
  Company Number: US-PFIZER INC-2009202451

PATIENT
  Sex: Female

DRUGS (8)
  1. LYRICA [Suspect]
     Indication: FIBROMYALGIA
     Dosage: UNK
     Dates: start: 20090501, end: 20090601
  2. LYRICA [Suspect]
     Dosage: UNK
  3. LYRICA [Suspect]
  4. ELAVIL [Concomitant]
  5. THYROID [Concomitant]
  6. SUDAFED 12 HOUR [Concomitant]
     Indication: HYPERSENSITIVITY
  7. ALLEGRA [Concomitant]
     Indication: HYPERSENSITIVITY
  8. GUAIFENESIN [Concomitant]
     Indication: HYPERSENSITIVITY

REACTIONS (4)
  - EYELID OEDEMA [None]
  - JOINT SWELLING [None]
  - OEDEMA PERIPHERAL [None]
  - SWELLING FACE [None]
